FAERS Safety Report 9692268 (Version 1)
Quarter: 2013Q4

REPORT INFORMATION
  Report Type: Spontaneous
  Country: US (occurrence: US)
  Receive Date: 20131118
  Receipt Date: 20131118
  Transmission Date: 20140711
  Serious: Yes (Hospitalization)
  Sender: FDA-Public Use
  Company Number: US-BRISTOL-MYERS SQUIBB COMPANY-19793942

PATIENT
  Age: 69 Year
  Sex: Male
  Weight: 98.2 kg

DRUGS (1)
  1. ELIQUIS [Suspect]
     Dosage: RED:2.5 MG BID

REACTIONS (1)
  - Blood creatinine increased [Unknown]
